FAERS Safety Report 6677488-9 (Version None)
Quarter: 2010Q2

REPORT INFORMATION
  Report Type: 
  Country: None (occurrence: None)
  Receive Date: 20100412
  Receipt Date: 20100330
  Transmission Date: 20101027
  Serious: Yes (Hospitalization)
  Sender: FDA-Public Use
  Company Number: B0644838A

PATIENT
  Age: 14 Month
  Sex: Female

DRUGS (2)
  1. AUGMENTIN '125' [Suspect]
     Indication: INFECTION
     Route: 048
     Dates: start: 20091223
  2. PURBAC [Concomitant]
     Indication: BACTERIAL INFECTION
     Route: 048
     Dates: start: 20100104

REACTIONS (10)
  - BODY TEMPERATURE INCREASED [None]
  - CHILLS [None]
  - CIRCULATORY COLLAPSE [None]
  - CYSTITIS [None]
  - NASOPHARYNGITIS [None]
  - PAIN [None]
  - PARAESTHESIA [None]
  - PYREXIA [None]
  - SKIN DISCOLOURATION [None]
  - VIRAL INFECTION [None]
